FAERS Safety Report 18259579 (Version 2)
Quarter: 2020Q3

REPORT INFORMATION
  Report Type: Spontaneous
  Country: JP (occurrence: JP)
  Receive Date: 20200911
  Receipt Date: 20200929
  Transmission Date: 20201103
  Serious: Yes (Other)
  Sender: FDA-Public Use
  Company Number: JP-BAXTER-2020BAX018635

PATIENT
  Age: 20 Year
  Sex: Male

DRUGS (6)
  1. ENDOXAN 1G [Suspect]
     Active Substance: CYCLOPHOSPHAMIDE
     Indication: EWING^S SARCOMA
     Dosage: TOTAL DOSE 9600 MG/M2.
     Route: 065
  2. VINCRISTINE SULFATE. [Concomitant]
     Active Substance: VINCRISTINE SULFATE
     Indication: EWING^S SARCOMA
     Route: 065
  3. DOXORUBICIN HYDROCHLORIDE. [Concomitant]
     Active Substance: DOXORUBICIN HYDROCHLORIDE
     Indication: PRODUCT USED FOR UNKNOWN INDICATION
     Route: 065
  4. ACTINOMYCIN D [Concomitant]
     Active Substance: DACTINOMYCIN
     Indication: EWING^S SARCOMA
     Route: 065
  5. IFOSFAMIDE FOR INJECTION [Suspect]
     Active Substance: IFOSFAMIDE
     Indication: EWING^S SARCOMA
     Dosage: A TOTAL DOSAGE OF 81,000 MG/M2
     Route: 065
  6. ETOPOSIDE. [Concomitant]
     Active Substance: ETOPOSIDE
     Indication: EWING^S SARCOMA
     Route: 065

REACTIONS (1)
  - Renal disorder [Unknown]
